FAERS Safety Report 6312022-4 (Version None)
Quarter: 2009Q3

REPORT INFORMATION
  Report Type: 
  Country: None (occurrence: None)
  Receive Date: 20090817
  Receipt Date: 20090807
  Transmission Date: 20100115
  Serious: Yes (Hospitalization, Other)
  Sender: FDA-Public Use
  Company Number: US-AMGEN-QUU357874

PATIENT
  Sex: Female
  Weight: 61.7 kg

DRUGS (11)
  1. ENBREL [Suspect]
     Indication: RHEUMATOID ARTHRITIS
     Route: 058
     Dates: start: 20060606
  2. AMITRIPTYLINE HCL [Concomitant]
     Dates: start: 20060630
  3. CLONIDINE [Concomitant]
     Dates: start: 20080320
  4. DICLOFENAC [Concomitant]
     Dates: start: 20080812
  5. EVOXAC [Concomitant]
     Dates: start: 20090323
  6. FENTANYL [Concomitant]
     Dates: start: 20080527
  7. GABAPEN [Concomitant]
     Dates: start: 20090115
  8. ROZEREM [Concomitant]
     Dates: start: 20080512
  9. TRAMADOL [Concomitant]
     Dates: start: 20080812
  10. HUMIRA [Concomitant]
     Dates: start: 20080812, end: 20081208
  11. METHADONE [Concomitant]
     Dates: start: 20071217, end: 20080321

REACTIONS (3)
  - INTERVERTEBRAL DISC PROTRUSION [None]
  - OESOPHAGITIS [None]
  - VERTEBRAL INJURY [None]
